FAERS Safety Report 12157980 (Version 1)
Quarter: 2016Q1

REPORT INFORMATION
  Report Type: Spontaneous
  Country: US (occurrence: US)
  Receive Date: 20160308
  Receipt Date: 20160308
  Transmission Date: 20160526
  Serious: Yes (Other)
  Sender: FDA-Public Use
  Company Number: US-ROCHE-1719637

PATIENT
  Sex: Female

DRUGS (3)
  1. PEGASYS [Suspect]
     Active Substance: PEGINTERFERON ALFA-2A
     Indication: HEPATITIS C
     Route: 065
  2. COPEGUS [Suspect]
     Active Substance: RIBAVIRIN
     Indication: HEPATITIS C
     Route: 065
  3. INTERFERON ALFA-2A [Concomitant]
     Active Substance: INTERFERON ALFA-2A
     Route: 065

REACTIONS (8)
  - Pulmonary fibrosis [Unknown]
  - Dyspnoea [Unknown]
  - Hepatitis C [Unknown]
  - Feeling cold [Unknown]
  - Abasia [Unknown]
  - Cryoglobulinaemia [Unknown]
  - Hepatic fibrosis [Not Recovered/Not Resolved]
  - Hypoxia [Unknown]
